FAERS Safety Report 16971613 (Version 1)
Quarter: 2019Q4

REPORT INFORMATION
  Report Type: Spontaneous
  Country: FR (occurrence: FR)
  Receive Date: 20191029
  Receipt Date: 20191029
  Transmission Date: 20200122
  Serious: Yes (Congenital Anomaly)
  Sender: FDA-Public Use
  Company Number: FR-BAUSCH-BL-2019-058640

PATIENT
  Sex: Male

DRUGS (3)
  1. GARDENAL [Suspect]
     Active Substance: PHENOBARBITAL
     Indication: EPILEPSY
     Dosage: UNKNOWN
     Route: 064
     Dates: end: 19760616
  2. DEPAKINE [Suspect]
     Active Substance: VALPROATE SODIUM
     Indication: EPILEPSY
     Route: 064
     Dates: end: 19760616
  3. MYSOLINE [Suspect]
     Active Substance: PRIMIDONE
     Indication: EPILEPSY
     Dosage: TABLET BREAKABLE
     Route: 064
     Dates: end: 19760616

REACTIONS (5)
  - Pectus excavatum [Recovered/Resolved with Sequelae]
  - Behaviour disorder [Recovered/Resolved with Sequelae]
  - Hypertelorism of orbit [Recovered/Resolved with Sequelae]
  - Inguinal hernia [Recovered/Resolved with Sequelae]
  - Language disorder [Recovered/Resolved with Sequelae]

NARRATIVE: CASE EVENT DATE: 19760616
